FAERS Safety Report 9804314 (Version 5)
Quarter: 2014Q2

REPORT INFORMATION
  Report Type: Spontaneous
  Country: US (occurrence: US)
  Receive Date: 20140108
  Receipt Date: 20140603
  Transmission Date: 20141212
  Serious: Yes (Death, Other)
  Sender: FDA-Public Use
  Company Number: US-BRISTOL-MYERS SQUIBB COMPANY-19969781

PATIENT
  Age: 70 Year
  Sex: Male

DRUGS (27)
  1. BYETTA [Suspect]
     Dosage: LAST DOSE ON 4MAY11?1DF= 250MCG/ML 2.4ML
     Dates: start: 20060711
  2. ASPIRIN [Concomitant]
     Route: 048
  3. ATENOLOL [Concomitant]
     Route: 048
  4. LIPITOR [Concomitant]
     Route: 048
  5. NEXIUM [Concomitant]
  6. PROZAC [Concomitant]
  7. LANTUS [Concomitant]
  8. ULTRAM [Concomitant]
  9. ZANTAC [Concomitant]
  10. VITAMIN D [Concomitant]
  11. NOVOLOG [Concomitant]
     Dosage: 1DF:70/30
  12. GLUCOPHAGE [Concomitant]
  13. NITROSTAT [Concomitant]
     Indication: CHEST PAIN
     Route: 057
  14. MIRALAX [Concomitant]
  15. SENNA [Concomitant]
     Dosage: TAB
  16. METFORMIN HCL [Concomitant]
     Dosage: 1DF: 1000 UNITS NOS
     Route: 048
  17. CALCIUM [Concomitant]
     Dosage: TABS
     Route: 048
  18. TRAMADOL HCL [Concomitant]
     Dosage: TABS
     Route: 048
  19. CIPRO [Concomitant]
     Dosage: 1DF=500MG TABS
     Route: 048
  20. CREON [Concomitant]
     Route: 048
  21. ZESTRIL [Concomitant]
     Dosage: 1DF=2 TABS,2.5MG TABS
     Route: 048
  22. AMITIZA [Concomitant]
     Route: 048
  23. MULTIVITAMIN [Concomitant]
     Dosage: CAPS
     Route: 048
  24. ZOFRAN [Concomitant]
     Route: 048
  25. PERCOCET [Concomitant]
     Dosage: 1DF=1-2TABS,325MG TABS
  26. REGLAN [Concomitant]
     Dosage: 1DF=1TAB,10MG TABS
     Route: 048
  27. HUMULIN [Concomitant]
     Route: 058

REACTIONS (2)
  - Pancreatic carcinoma [Fatal]
  - Back disorder [Unknown]
